FAERS Safety Report 13716471 (Version 4)
Quarter: 2017Q3

REPORT INFORMATION
  Report Type: Report from Study
  Country: FI (occurrence: FI)
  Receive Date: 20170705
  Receipt Date: 20170724
  Transmission Date: 20171127
  Serious: Yes (Hospitalization, Other)
  Sender: FDA-Public Use
  Company Number: FI-MYLANLABS-2017M1037635

PATIENT

DRUGS (5)
  1. LEPONEX [Suspect]
     Active Substance: CLOZAPINE
     Indication: SCHIZOPHRENIA
     Dosage: UNK
     Dates: start: 201703
  2. LEPONEX [Suspect]
     Active Substance: CLOZAPINE
     Dosage: 200 MG, PM
     Dates: start: 20170622
  3. MINISUN D3-VITAMIINI [Concomitant]
     Indication: PRODUCT USED FOR UNKNOWN INDICATION
     Dosage: UNK
  4. MULTIVITAMIN [Concomitant]
     Active Substance: VITAMINS
     Indication: PRODUCT USED FOR UNKNOWN INDICATION
     Dosage: UNK
  5. SERENASE [Concomitant]
     Active Substance: HALOPERIDOL
     Indication: PRODUCT USED FOR UNKNOWN INDICATION
     Dosage: 2 MG, BID
     Dates: start: 201706

REACTIONS (8)
  - Ureteric stenosis [Unknown]
  - Mental disorder [Not Recovered/Not Resolved]
  - Hydronephrosis [Unknown]
  - Blood glucose increased [Unknown]
  - Hepatic steatosis [Unknown]
  - Renal injury [Unknown]
  - Liver disorder [Unknown]
  - Hepatic enzyme increased [Recovering/Resolving]

NARRATIVE: CASE EVENT DATE: 2017
